FAERS Safety Report 12037373 (Version 1)
Quarter: 2016Q1

REPORT INFORMATION
  Report Type: Spontaneous
  Country: US (occurrence: US)
  Receive Date: 20160208
  Receipt Date: 20160208
  Transmission Date: 20160526
  Serious: No
  Sender: FDA-Public Use
  Company Number: US-BAYER-2016-020689

PATIENT
  Age: 64 Year
  Sex: Female
  Weight: 49.89 kg

DRUGS (2)
  1. ZANTAC [Concomitant]
     Active Substance: RANITIDINE HYDROCHLORIDE
  2. ALEVE PM [Suspect]
     Active Substance: DIPHENHYDRAMINE HYDROCHLORIDE\NAPROXEN SODIUM
     Indication: ARTHRITIS
     Dosage: 2 DF, PRN
     Route: 048

REACTIONS (3)
  - Abdominal pain upper [Recovered/Resolved]
  - Drug ineffective for unapproved indication [Unknown]
  - Abdominal discomfort [None]

NARRATIVE: CASE EVENT DATE: 2015
